FAERS Safety Report 12252247 (Version 1)
Quarter: 2016Q2

REPORT INFORMATION
  Report Type: Spontaneous
  Country: US (occurrence: None)
  Receive Date: 20160408
  Receipt Date: 20160408
  Transmission Date: 20160815
  Serious: Yes (Life-Threatening)
  Sender: FDA-Public Use
  Company Number: None

PATIENT
  Age: 63 Year
  Sex: Female
  Weight: 53.6 kg

DRUGS (1)
  1. DOFETILIDE, 500 MG [Suspect]
     Active Substance: DOFETILIDE
     Indication: CARDIOVERSION
     Route: 048
     Dates: start: 20160219, end: 20160220

REACTIONS (2)
  - Cardiac arrest [None]
  - Torsade de pointes [None]

NARRATIVE: CASE EVENT DATE: 20160220
